FAERS Safety Report 6348102-7 (Version None)
Quarter: 2009Q3

REPORT INFORMATION
  Report Type: 
  Country: None (occurrence: None)
  Receive Date: 20090910
  Receipt Date: 20090831
  Transmission Date: 20100115
  Serious: Yes (Hospitalization)
  Sender: FDA-Public Use
  Company Number: GT-ABBOTT-08P-069-0490423-00

PATIENT
  Sex: Female
  Weight: 63 kg

DRUGS (6)
  1. RITONAVIR SOFT GELATIN CAPSULES [Suspect]
     Indication: HIV INFECTION
     Route: 048
     Dates: start: 20060529, end: 20081123
  2. RITONAVIR SOFT GELATIN CAPSULES [Suspect]
     Route: 048
     Dates: start: 20081125
  3. TMC114 [Concomitant]
     Indication: HIV INFECTION
     Route: 048
     Dates: start: 20060529, end: 20081123
  4. TMC114 [Concomitant]
     Route: 048
     Dates: start: 20081125
  5. TRUVADA [Concomitant]
     Indication: HIV INFECTION
     Route: 048
     Dates: start: 20060529, end: 20081123
  6. TRUVADA [Concomitant]
     Route: 048
     Dates: start: 20081125

REACTIONS (1)
  - OTITIS MEDIA [None]
